FAERS Safety Report 14188013 (Version 1)
Quarter: 2017Q4

REPORT INFORMATION
  Report Type: Spontaneous
  Country: US (occurrence: None)
  Receive Date: 20171113
  Receipt Date: 20171113
  Transmission Date: 20180321
  Serious: Yes (Hospitalization)
  Sender: FDA-Public Use
  Company Number: None

PATIENT
  Age: 39 Year
  Sex: Female

DRUGS (8)
  1. FISH OIL [Concomitant]
     Active Substance: FISH OIL
  2. COSENTYX [Suspect]
     Active Substance: SECUKINUMAB
     Indication: PSORIATIC ARTHROPATHY
     Dosage: 300MG Q4W SC
     Route: 058
     Dates: start: 20170207
  3. PROBIOTIC [Concomitant]
     Active Substance: PROBIOTICS NOS
  4. METAMUCIL [Concomitant]
     Active Substance: PLANTAGO SEED
  5. A-HYDROCORT [Concomitant]
     Active Substance: HYDROCORTISONE SODIUM SUCCINATE
  6. CALIPOTRIEN [Concomitant]
  7. TEMAZEPAM. [Concomitant]
     Active Substance: TEMAZEPAM
  8. TRAM [Concomitant]

REACTIONS (2)
  - Psoriatic arthropathy [None]
  - Arthropod bite [None]

NARRATIVE: CASE EVENT DATE: 20171011
